FAERS Safety Report 18111520 (Version 2)
Quarter: 2020Q3

REPORT INFORMATION
  Report Type: Report from Study
  Country: AR (occurrence: AR)
  Receive Date: 20200804
  Receipt Date: 20200818
  Transmission Date: 20201103
  Serious: Yes (Other)
  Sender: FDA-Public Use
  Company Number: NVSC2020AR215613

PATIENT
  Sex: Female

DRUGS (2)
  1. DIOVAN [Suspect]
     Active Substance: VALSARTAN
     Indication: HYPERTENSION
     Dosage: 1 OF 80
     Route: 065
  2. EXFORGE [Suspect]
     Active Substance: AMLODIPINE BESYLATE\VALSARTAN
     Indication: HYPERTENSION
     Dosage: UNK, QD (160/5/12.5 MG) (1 AND ?) (APPROXIMATELY 2 YEARS AGO)
     Route: 048

REACTIONS (5)
  - Off label use [Unknown]
  - Visual impairment [Unknown]
  - Blood pressure increased [Unknown]
  - Feeling abnormal [Unknown]
  - Fear [Unknown]
